FAERS Safety Report 19150944 (Version 2)
Quarter: 2021Q2

REPORT INFORMATION
  Report Type: Spontaneous
  Country: BR (occurrence: BR)
  Receive Date: 20210419
  Receipt Date: 20210511
  Transmission Date: 20210717
  Serious: Yes (Death)
  Sender: FDA-Public Use
  Company Number: BR-ROCHE-2811776

PATIENT
  Age: 68 Year
  Sex: Female
  Weight: 80 kg

DRUGS (6)
  1. ADRENALIN [Concomitant]
     Active Substance: EPINEPHRINE
  2. ANIDULAFUNGIN [Concomitant]
     Active Substance: ANIDULAFUNGIN
  3. ACTEMRA [Suspect]
     Active Substance: TOCILIZUMAB
     Indication: COVID-19
     Route: 042
     Dates: start: 20210326, end: 20210326
  4. VASOPRESSIN. [Concomitant]
     Active Substance: VASOPRESSIN
  5. NORADRENALINE [Concomitant]
     Active Substance: NOREPINEPHRINE
  6. OXYGEN. [Concomitant]
     Active Substance: OXYGEN

REACTIONS (5)
  - C-reactive protein increased [Unknown]
  - Fungal infection [Fatal]
  - Cardiac arrest [Fatal]
  - Off label use [Unknown]
  - Multi-organ disorder [Fatal]

NARRATIVE: CASE EVENT DATE: 20210326
